FAERS Safety Report 5380561-9 (Version None)
Quarter: 2007Q2

REPORT INFORMATION
  Report Type: 
  Country: None (occurrence: None)
  Receive Date: 20070530
  Receipt Date: 20070308
  Transmission Date: 20071010
  Serious: No
  Sender: FDA-Public Use
  Company Number: 2007PV031337

PATIENT
  Age: 53 Year
  Sex: Female
  Weight: 129.2752 kg

DRUGS (4)
  1. BYETTA [Suspect]
     Indication: DIABETES MELLITUS NON-INSULIN-DEPENDENT
     Dosage: 10 MCG;BDI; SC; 5 MCG; BID; SC
     Route: 058
     Dates: start: 20060901, end: 20061001
  2. BYETTA [Suspect]
     Indication: DIABETES MELLITUS NON-INSULIN-DEPENDENT
     Dosage: 10 MCG;BDI; SC; 5 MCG; BID; SC
     Route: 058
     Dates: start: 20041001
  3. ACTOS [Concomitant]
  4. GLIMEPIRIDE [Concomitant]

REACTIONS (1)
  - WEIGHT INCREASED [None]
